FAERS Safety Report 4659464-0 (Version None)
Quarter: 2005Q2

REPORT INFORMATION
  Report Type: 
  Country: None (occurrence: None)
  Receive Date: 20050412
  Receipt Date: 20041216
  Transmission Date: 20051028
  Serious: No
  Sender: FDA-Public Use
  Company Number: 2004S1000278

PATIENT
  Sex: Female

DRUGS (3)
  1. CUBICIN [Suspect]
     Indication: EXTRADURAL ABSCESS
     Dosage: 6 MG/KG; X1; IV
     Route: 042
     Dates: start: 20041101, end: 20041101
  2. CUBICIN [Suspect]
     Indication: STAPHYLOCOCCAL INFECTION
     Dosage: 6 MG/KG; X1; IV
     Route: 042
     Dates: start: 20041101, end: 20041101
  3. NAFCILLIN SODIUM [Concomitant]

REACTIONS (1)
  - RASH [None]
